FAERS Safety Report 21545745 (Version 2)
Quarter: 2022Q4

REPORT INFORMATION
  Report Type: Spontaneous
  Country: US (occurrence: None)
  Receive Date: 20221103
  Receipt Date: 20221125
  Transmission Date: 20230112
  Serious: No
  Sender: FDA-Public Use
  Company Number: 2022A349892

PATIENT
  Age: 54 Year

DRUGS (2)
  1. SAPHNELO [Suspect]
     Active Substance: ANIFROLUMAB-FNIA
     Route: 042
  2. SHINGRIX [Concomitant]
     Active Substance: RECOMBINANT VARICELLA ZOSTER VIRUS (VZV) GLYCOPROTEIN E
     Route: 065

REACTIONS (7)
  - Arthritis [Unknown]
  - Photosensitivity reaction [Unknown]
  - Pleurisy [Unknown]
  - Mouth ulceration [Unknown]
  - Alopecia [Unknown]
  - Leukopenia [Unknown]
  - Herpes zoster [Unknown]
